FAERS Safety Report 14212115 (Version 2)
Quarter: 2018Q1

REPORT INFORMATION
  Report Type: Spontaneous
  Country: DE (occurrence: DE)
  Receive Date: 20171122
  Receipt Date: 20180130
  Transmission Date: 20180508
  Serious: Yes (Other)
  Sender: FDA-Public Use
  Company Number: DE-NAPPMUNDI-GBR-2017-0050712

PATIENT
  Sex: Male

DRUGS (1)
  1. PALLADONE [Suspect]
     Active Substance: HYDROMORPHONE HYDROCHLORIDE
     Indication: PAIN
     Route: 065

REACTIONS (9)
  - Dementia [Unknown]
  - Enuresis [Unknown]
  - Pain [Unknown]
  - Drug prescribing error [Unknown]
  - Prescribed overdose [Unknown]
  - Incorrect dose administered [Unknown]
  - Inappropriate schedule of drug administration [Unknown]
  - Adverse drug reaction [Unknown]
  - Drug interaction [Unknown]
